FAERS Safety Report 14241318 (Version 2)
Quarter: 2017Q4

REPORT INFORMATION
  Report Type: Report from Study
  Country: MX (occurrence: MX)
  Receive Date: 20171130
  Receipt Date: 20171228
  Transmission Date: 20180321
  Serious: No
  Sender: FDA-Public Use
  Company Number: MX-UCBSA-2017047948

PATIENT
  Sex: Female
  Weight: 6 kg

DRUGS (5)
  1. LEVETIRACETAM. [Suspect]
     Active Substance: LEVETIRACETAM
     Indication: CONVULSION PROPHYLAXIS
     Dosage: 100 MG/ML
     Route: 048
     Dates: start: 20161216, end: 201709
  2. LEVETIRACETAM. [Suspect]
     Active Substance: LEVETIRACETAM
     Dosage: 0.9 ML, 2X/DAY (BID)
     Route: 048
     Dates: start: 201709, end: 201711
  3. LEVETIRACETAM. [Suspect]
     Active Substance: LEVETIRACETAM
     Dosage: 1 ML, 2X/DAY (BID)
     Route: 048
     Dates: start: 20171122
  4. NEXIUM [Concomitant]
     Active Substance: ESOMEPRAZOLE MAGNESIUM
     Indication: PRODUCT USED FOR UNKNOWN INDICATION
     Dosage: 6 ML, ONCE DAILY (QD)
     Dates: start: 20161216
  5. CLEBOPRIDE [Concomitant]
     Active Substance: CLEBOPRIDE
     Indication: PRODUCT USED FOR UNKNOWN INDICATION
     Dosage: 1.5 ML, 3X/DAY (TID)

REACTIONS (1)
  - No adverse event [Unknown]
